FAERS Safety Report 20503623 (Version 3)
Quarter: 2022Q2

REPORT INFORMATION
  Report Type: Report from Study
  Country: IT (occurrence: IT)
  Receive Date: 20220222
  Receipt Date: 20220407
  Transmission Date: 20220720
  Serious: Yes (Death, Other)
  Sender: FDA-Public Use
  Company Number: IT-002147023-NVSC2022IT034066

PATIENT

DRUGS (2)
  1. RUXOLITINIB [Suspect]
     Active Substance: RUXOLITINIB
     Indication: Myelofibrosis
     Dosage: UNK
     Route: 065
     Dates: start: 201711, end: 20200109
  2. CYTARABINE [Concomitant]
     Active Substance: CYTARABINE
     Indication: Product used for unknown indication
     Dosage: UNK
     Route: 065
     Dates: start: 20200115

REACTIONS (10)
  - Neutropenia [Fatal]
  - Sepsis [Fatal]
  - Leukaemia [Unknown]
  - Musculoskeletal pain [Unknown]
  - Lymphadenopathy [Unknown]
  - Leukocytosis [Unknown]
  - Monocytosis [Unknown]
  - Herpes virus infection [Unknown]
  - Urinary tract infection [Unknown]
  - Anaemia [Unknown]

NARRATIVE: CASE EVENT DATE: 20180301
